FAERS Safety Report 7755681-1 (Version None)
Quarter: 2011Q3

REPORT INFORMATION
  Report Type: 
  Country: None (occurrence: None)
  Receive Date: 20110916
  Receipt Date: 20110907
  Transmission Date: 20111222
  Serious: Yes (Hospitalization)
  Sender: FDA-Public Use
  Company Number: DE-UCBSA-037848

PATIENT
  Sex: Female

DRUGS (1)
  1. NEUPRO [Suspect]
     Indication: PARKINSON'S DISEASE
     Dosage: 8MG + 2MG; 8 MG ONE SINGLE DOSE PER DAY DAILY
     Route: 062

REACTIONS (2)
  - PSYCHOMOTOR SKILLS IMPAIRED [None]
  - DRUG INEFFECTIVE [None]
